FAERS Safety Report 4344791-7 (Version None)
Quarter: 2004Q2

REPORT INFORMATION
  Report Type: 
  Country: None (occurrence: None)
  Receive Date: 20040420
  Receipt Date: 20040409
  Transmission Date: 20050107
  Serious: Yes (Hospitalization)
  Sender: FDA-Public Use
  Company Number: 2004024873

PATIENT
  Age: 74 Year
  Sex: Female

DRUGS (15)
  1. TAHOR (ATORVASTATIN) [Suspect]
     Indication: ILL-DEFINED DISORDER
     Dosage: (DAILY), ORAL
     Route: 048
     Dates: start: 20020917
  2. DICLOFENAC SODIUM [Suspect]
     Indication: ILL-DEFINED DISORDER
     Dosage: 100 (DAILY), ORAL
     Route: 048
     Dates: start: 20021130, end: 20021216
  3. FLUINDIONE (FLUINDIONE) [Suspect]
     Indication: ILL-DEFINED DISORDER
     Dosage: 20 MG, ORAL
     Route: 048
     Dates: start: 20021207, end: 20021216
  4. ROXITHROMYCIN (ROXITHROMYCIN) [Suspect]
     Indication: ILL-DEFINED DISORDER
     Dosage: 300 (DAILY), ORAL
     Route: 048
     Dates: start: 20021213, end: 20021216
  5. LEVOTHYROXINE SODIUM [Suspect]
     Indication: ILL-DEFINED DISORDER
     Dosage: 100 MCG (DAILY), ORAL
     Route: 048
     Dates: start: 20020917
  6. AMIODARONE HCL [Suspect]
     Indication: ILL-DEFINED DISORDER
     Dosage: 200 MG, ORAL
     Route: 048
     Dates: start: 20020917
  7. FLUCONAZOLE [Concomitant]
  8. SACCHAROMYCES BOULARDII (SACCHAROMYCES BOULARDII) [Concomitant]
  9. SODIUM POLYSTYRENE SULFONATE (SODIUM POLYSTYRENE SULFONATE) [Concomitant]
  10. TRAMADOL HCL [Concomitant]
  11. FUROSEMIDE [Concomitant]
  12. AMITRIPTYLINE HYDROCHLORIDE [Concomitant]
  13. OMEPRAZOLE [Concomitant]
  14. LORMETAZEPAM (LORMETAZEPAM) [Concomitant]
  15. RAMIPRIL [Concomitant]

REACTIONS (10)
  - BLOOD FIBRINOGEN INCREASED [None]
  - COAGULATION FACTOR X LEVEL DECREASED [None]
  - DRUG INTERACTION [None]
  - HAEMATOCRIT DECREASED [None]
  - HAEMOGLOBIN DECREASED [None]
  - HAEMORRHAGE [None]
  - INTERNATIONAL NORMALISED RATIO INCREASED [None]
  - PALLOR [None]
  - PROTHROMBIN LEVEL DECREASED [None]
  - SKIN NECROSIS [None]
